FAERS Safety Report 5681093-0 (Version None)
Quarter: 2008Q1

REPORT INFORMATION
  Report Type: 
  Country: None (occurrence: None)
  Receive Date: 20080325
  Receipt Date: 20080317
  Transmission Date: 20080703
  Serious: Yes (Congenital Anomaly)
  Sender: FDA-Public Use
  Company Number: THQ2007A00094

PATIENT
  Sex: Male

DRUGS (7)
  1. PROSTAP SR  (LEUPROLIDE ACETATE) [Suspect]
     Indication: ASSISTED FERTILISATION
     Dosage: 3.75 MG (3.75 MG, 1 IN 1 M) TRANSPLACENTAL
     Route: 064
     Dates: start: 20000101
  2. DIPRIVAN [Suspect]
     Indication: SEDATION
     Dosage: 240 MG OVER 30 MINUTES ONCE (ONCE) TRANSPLACENTAL
     Route: 064
     Dates: start: 20000101
  3. PREGNYL [Suspect]
     Indication: ASSISTED FERTILISATION
     Dosage: 10,000 IU 36 HOURS BEFOR OOCYTE COLLECTION (ONCE) TRANSPLACENTAL
     Route: 064
     Dates: start: 20000101
  4. CYCLOGEST (PROGESTERONE) [Suspect]
     Indication: ASSISTED FERTILISATION
     Dosage: 80 MG (400 MG, 2 IN 1 D) TRANSPLACENTAL
     Route: 064
     Dates: start: 20000101
  5. PUREGON (FOLLITROPIN BETA) [Suspect]
     Indication: ASSISTED FERTILISATION
     Dosage: 150 IU (150 IU, 1 IN 1 D) TRANSPLACENTAL : 100 IU (100 IU, 1 IN 1 D) TRANSPLACENTAL
     Route: 064
     Dates: start: 20000101
  6. PUREGON (FOLLITROPIN BETA) [Suspect]
     Indication: ASSISTED FERTILISATION
     Dosage: 150 IU (150 IU, 1 IN 1 D) TRANSPLACENTAL : 100 IU (100 IU, 1 IN 1 D) TRANSPLACENTAL
     Route: 064
     Dates: start: 20000101
  7. RAPIFEN (ALFENTANIL HYDROCHLORIDE) [Suspect]
     Indication: SEDATION
     Dosage: 600 MG (ONCE) TRANSPLACENTAL
     Route: 064
     Dates: start: 20000101

REACTIONS (3)
  - ABORTION INDUCED [None]
  - DRUG EXPOSURE BEFORE PREGNANCY [None]
  - Y-LINKED CHROMOSOMAL DISORDER [None]
